FAERS Safety Report 24256874 (Version 2)
Quarter: 2024Q3

REPORT INFORMATION
  Report Type: Report from Study
  Country: US (occurrence: US)
  Receive Date: 20240828
  Receipt Date: 20240903
  Transmission Date: 20241017
  Serious: Yes (Other)
  Sender: ABBVIE
  Company Number: US-ABBVIE-5894165

PATIENT
  Age: 55 Year
  Sex: Male

DRUGS (2)
  1. CREON [Suspect]
     Active Substance: PANCRELIPASE AMYLASE\PANCRELIPASE LIPASE\PANCRELIPASE PROTEASE
     Indication: Pancreatic failure
     Route: 048
     Dates: start: 20180814
  2. CREON [Suspect]
     Active Substance: PANCRELIPASE AMYLASE\PANCRELIPASE LIPASE\PANCRELIPASE PROTEASE
     Indication: Pancreatic failure
     Dosage: FORM STRENGTH: 240000 UNIT?FREQUENCY TEXT: 7 CAPS FOR EACH MEAL
     Route: 048
     Dates: start: 2020

REACTIONS (3)
  - Anastomotic complication [Unknown]
  - Pancreatolithiasis [Unknown]
  - Pancreaticoduodenectomy [Unknown]

NARRATIVE: CASE EVENT DATE: 20200101
